FAERS Safety Report 9018055 (Version 2)
Quarter: 2013Q1

REPORT INFORMATION
  Report Type: Report from Study
  Country: JP (occurrence: JP)
  Receive Date: 20130117
  Receipt Date: 20130214
  Transmission Date: 20140127
  Serious: No
  Sender: FDA-Public Use
  Company Number: JP-GILEAD-2013-0067922

PATIENT
  Sex: Male

DRUGS (6)
  1. AMBRISENTAN [Suspect]
     Indication: PULMONARY EMBOLISM
     Dosage: 10 MG, QD
     Route: 048
     Dates: start: 20120417
  2. ADCIRCA [Concomitant]
     Indication: PULMONARY EMBOLISM
     Route: 048
     Dates: start: 20110301, end: 20121225
  3. THYRADIN S [Concomitant]
     Route: 048
  4. FUROSEMIDE [Concomitant]
     Route: 048
  5. WARFARIN [Concomitant]
     Route: 048
  6. DIGOSIN [Concomitant]
     Route: 048

REACTIONS (1)
  - No adverse event [Unknown]
